FAERS Safety Report 25758447 (Version 1)
Quarter: 2025Q3

REPORT INFORMATION
  Report Type: Spontaneous
  Country: US (occurrence: US)
  Receive Date: 20250904
  Receipt Date: 20250904
  Transmission Date: 20251020
  Serious: No
  Sender: GALDERMA
  Company Number: US-GALDERMA-US2025015464

PATIENT

DRUGS (3)
  1. PROACTIV MD ADAPALENE ACNE TREATMENT [Suspect]
     Active Substance: ADAPALENE
     Indication: Product used for unknown indication
     Route: 061
  2. PROACTIV SKIN PURIFYING MASK [Concomitant]
     Active Substance: SULFUR
     Indication: Product used for unknown indication
     Route: 061
  3. GLYCOLIC ACID\SALICYLIC ACID [Concomitant]
     Active Substance: GLYCOLIC ACID\SALICYLIC ACID
     Indication: Product used for unknown indication
     Route: 061

REACTIONS (2)
  - Pain of skin [Unknown]
  - Expired product administered [Recovered/Resolved]
